FAERS Safety Report 23066187 (Version 1)
Quarter: 2023Q4

REPORT INFORMATION
  Report Type: Other
  Country: None (occurrence: US)
  Receive Date: 20231014
  Receipt Date: 20231014
  Transmission Date: 20240110
  Serious: Yes (Hospitalization)
  Sender: FDA-Public Use
  Company Number: US-B.Braun Medical Inc.-2147091

PATIENT
  Age: 31 Year
  Sex: Female

DRUGS (1)
  1. ACETAMINOPHEN [Suspect]
     Active Substance: ACETAMINOPHEN
     Indication: Abdominal pain

REACTIONS (7)
  - Acute kidney injury [None]
  - Pancreatitis [None]
  - Diarrhoea [None]
  - Hepatomegaly [None]
  - Hepatic steatosis [None]
  - Toxicity to various agents [None]
  - Mitochondrial toxicity [None]
